FAERS Safety Report 8224780-2 (Version None)
Quarter: 2012Q1

REPORT INFORMATION
  Report Type: 
  Country: None (occurrence: None)
  Receive Date: 20120321
  Receipt Date: 20120312
  Transmission Date: 20120608
  Serious: Yes (Life-Threatening)
  Sender: FDA-Public Use
  Company Number: GB-TEVA-2011000658

PATIENT
  Sex: Male
  Weight: 112.5 kg

DRUGS (11)
  1. BENDAMUSTINE HCL [Suspect]
     Route: 042
     Dates: start: 20101101, end: 20101230
  2. METACLOPRAMIDE [Concomitant]
  3. ASPIRIN [Concomitant]
  4. LERCANIDIPINE [Concomitant]
  5. GLICLAZIDA [Concomitant]
  6. BISOPROLOL FUMARATE [Concomitant]
  7. RAMIPRIL [Concomitant]
  8. RITUXIMAB [Suspect]
     Route: 042
     Dates: start: 20101101, end: 20101229
  9. AUGMENTIN '125' [Concomitant]
     Dates: start: 20110107, end: 20110111
  10. SIMVASTATIN [Concomitant]
  11. ALLOPURINOL [Concomitant]

REACTIONS (1)
  - PNEUMONITIS [None]
